FAERS Safety Report 7241071-7 (Version None)
Quarter: 2011Q1

REPORT INFORMATION
  Report Type: 
  Country: None (occurrence: None)
  Receive Date: 20110120
  Receipt Date: 20110120
  Transmission Date: 20110831
  Serious: No
  Sender: FDA-Public Use
  Company Number: None

PATIENT
  Sex: Male
  Weight: 89.8122 kg

DRUGS (2)
  1. OMEPRAZOLE [Suspect]
     Indication: GASTROOESOPHAGEAL REFLUX DISEASE
     Dosage: 20MG QD ORAL
     Route: 048
     Dates: start: 20091101
  2. OMEPRAZOLE [Suspect]
     Indication: BARRETT'S OESOPHAGUS
     Dosage: 20MG QD ORAL
     Route: 048
     Dates: start: 20091101

REACTIONS (1)
  - NO THERAPEUTIC RESPONSE [None]
